FAERS Safety Report 7137168-2 (Version None)
Quarter: 2010Q4

REPORT INFORMATION
  Report Type: 
  Country: None (occurrence: None)
  Receive Date: 20101119
  Receipt Date: 20100818
  Transmission Date: 20110411
  Serious: Yes (Disabling)
  Sender: FDA-Public Use
  Company Number: 00000290

PATIENT
  Age: 49 Year
  Sex: Female
  Weight: 61.6892 kg

DRUGS (5)
  1. CITALOPRAM HYDROBROMIDE [Suspect]
     Dosage: 3 PER DAY - ORAL
     Route: 048
     Dates: start: 20090401, end: 20100430
  2. REBIF [Concomitant]
  3. IBUPROFEN [Concomitant]
  4. GABAPENTIN [Concomitant]
  5. PROVIGIL [Concomitant]

REACTIONS (6)
  - ALOPECIA [None]
  - FACE INJURY [None]
  - GUN SHOT WOUND [None]
  - HALLUCINATION [None]
  - HYPERTENSION [None]
  - SUICIDE ATTEMPT [None]
